FAERS Safety Report 7201722-X (Version None)
Quarter: 2010Q4

REPORT INFORMATION
  Report Type: 
  Country: None (occurrence: None)
  Receive Date: 20101214
  Receipt Date: 20101205
  Transmission Date: 20110411
  Serious: Yes (Hospitalization, Other)
  Sender: FDA-Public Use
  Company Number: 2010US004952

PATIENT
  Sex: Female

DRUGS (4)
  1. PROGRAF [Suspect]
     Indication: PANCREAS TRANSPLANT
  2. PROGRAF [Suspect]
     Indication: RENAL TRANSPLANT
  3. PREDNISONE TAB [Concomitant]
  4. MYCOPHENOLAE MOFETIL (MYCOPHENOLATE MOFETIL) [Concomitant]

REACTIONS (9)
  - CYTOMEGALOVIRUS COLITIS [None]
  - CYTOMEGALOVIRUS INFECTION [None]
  - CYTOMEGALOVIRUS VIRAEMIA [None]
  - DIARRHOEA [None]
  - KIDNEY TRANSPLANT REJECTION [None]
  - PANCREAS TRANSPLANT [None]
  - PANCREAS TRANSPLANT REJECTION [None]
  - PANCREATITIS ACUTE [None]
  - PANNICULITIS [None]
